FAERS Safety Report 8204230-2 (Version None)
Quarter: 2012Q1

REPORT INFORMATION
  Report Type: 
  Country: None (occurrence: None)
  Receive Date: 20120227
  Receipt Date: 20120111
  Transmission Date: 20120608
  Serious: No
  Sender: FDA-Public Use
  Company Number: 342924

PATIENT
  Age: 54 Year
  Sex: Female

DRUGS (1)
  1. VICTOZA [Suspect]
     Indication: TYPE 2 DIABETES MELLITUS
     Dosage: SUBCUTANEOUS
     Route: 058

REACTIONS (7)
  - HEADACHE [None]
  - ASTHENIA [None]
  - HEPATOMEGALY [None]
  - DYSURIA [None]
  - DECREASED APPETITE [None]
  - VOMITING [None]
  - DIARRHOEA [None]
